FAERS Safety Report 12650895 (Version 3)
Quarter: 2018Q4

REPORT INFORMATION
  Report Type: Spontaneous
  Country: US (occurrence: US)
  Receive Date: 20160815
  Receipt Date: 20181105
  Transmission Date: 20190204
  Serious: No
  Sender: FDA-Public Use
  Company Number: US-JAZZ-2016-US-004747

PATIENT
  Sex: Female

DRUGS (18)
  1. NEURONTIN [Concomitant]
     Active Substance: GABAPENTIN
  2. PROVIGIL [Concomitant]
     Active Substance: MODAFINIL
  3. PERCOCET [Suspect]
     Active Substance: ACETAMINOPHEN\OXYCODONE HYDROCHLORIDE
     Indication: PRODUCT USED FOR UNKNOWN INDICATION
  4. SKELAXIN [Concomitant]
     Active Substance: METAXALONE
  5. HYDROXYZINE HCL [Concomitant]
     Active Substance: HYDROXYZINE HYDROCHLORIDE
  6. KLONOPIN [Concomitant]
     Active Substance: CLONAZEPAM
  7. MOTRIN [Concomitant]
     Active Substance: IBUPROFEN
  8. OVCON-35 [Concomitant]
  9. PROAIR HFA [Concomitant]
     Active Substance: ALBUTEROL SULFATE
  10. XYREM [Suspect]
     Active Substance: SODIUM OXYBATE
     Dosage: 3 G, BID
     Route: 048
     Dates: start: 201405, end: 201411
  11. ANTIBIOTIC [Suspect]
     Active Substance: UNSPECIFIED INGREDIENT
     Indication: PRODUCT USED FOR UNKNOWN INDICATION
  12. TRAZODONE HYDROCHLORIDE. [Concomitant]
     Active Substance: TRAZODONE HYDROCHLORIDE
  13. XYREM [Suspect]
     Active Substance: SODIUM OXYBATE
     Dosage: 2.25 G, BID
     Route: 048
     Dates: start: 201411
  14. VIIBRYD [Concomitant]
     Active Substance: VILAZODONE HYDROCHLORIDE
  15. XYREM [Suspect]
     Active Substance: SODIUM OXYBATE
     Indication: NARCOLEPSY
     Dosage: 2.25 G, BID
     Route: 048
     Dates: start: 201404, end: 201405
  16. PHENERGAN [Suspect]
     Active Substance: PROMETHAZINE HYDROCHLORIDE
     Indication: PRODUCT USED FOR UNKNOWN INDICATION
  17. ELMIRON [Concomitant]
     Active Substance: PENTOSAN POLYSULFATE SODIUM
  18. LAMICTAL [Concomitant]
     Active Substance: LAMOTRIGINE

REACTIONS (7)
  - Upper respiratory tract congestion [Not Recovered/Not Resolved]
  - Heart rate increased [Not Recovered/Not Resolved]
  - Asthenia [Unknown]
  - Dizziness [Unknown]
  - Disorientation [Unknown]
  - Dyspnoea [Not Recovered/Not Resolved]
  - Asthma exercise induced [Recovered/Resolved]
